FAERS Safety Report 9537060 (Version 1)
Quarter: 2013Q3

REPORT INFORMATION
  Report Type: Spontaneous
  Country: US (occurrence: US)
  Receive Date: 20130919
  Receipt Date: 20130919
  Transmission Date: 20140515
  Serious: Yes (Other)
  Sender: FDA-Public Use
  Company Number: US-PFIZER INC-2013265644

PATIENT
  Sex: Male

DRUGS (1)
  1. ADVIL [Suspect]
     Indication: BACK PAIN
     Dosage: UNK (PROBABLY 8 TABLETS), DAILY
     Route: 048

REACTIONS (2)
  - Back pain [Unknown]
  - Overdose [Unknown]
